FAERS Safety Report 4986877-X (Version None)
Quarter: 2006Q2

REPORT INFORMATION
  Report Type: 
  Country: None (occurrence: None)
  Receive Date: 20060428
  Receipt Date: 20060304
  Transmission Date: 20061013
  Serious: Yes (Death)
  Sender: FDA-Public Use
  Company Number: AT-ABBOTT-06P-009-0327073-00

PATIENT
  Age: 68 Year
  Sex: Male
  Weight: 64.5 kg

DRUGS (3)
  1. ZEMPLAR [Suspect]
     Indication: HYPERPARATHYROIDISM SECONDARY
     Route: 042
     Dates: start: 20050915, end: 20060129
  2. CALCIUM CARBONATE [Concomitant]
     Indication: HYPERPARATHYROIDISM SECONDARY
     Dates: start: 20000901, end: 20060129
  3. CALCITRIOL [Concomitant]
     Indication: HYPERPARATHYROIDISM SECONDARY
     Dosage: VARIABLE DOSE
     Dates: start: 20000901, end: 20050915

REACTIONS (7)
  - ARTERIOSCLEROSIS [None]
  - CARDIAC ARREST [None]
  - DIABETIC COMPLICATION [None]
  - INTERSTITIAL LUNG DISEASE [None]
  - LIPOMATOSIS [None]
  - MYOCARDIAL INFARCTION [None]
  - RENAL DISORDER [None]
